FAERS Safety Report 8273326-1 (Version None)
Quarter: 2012Q2

REPORT INFORMATION
  Report Type: 
  Country: None (occurrence: None)
  Receive Date: 20120411
  Receipt Date: 20120404
  Transmission Date: 20120825
  Serious: Yes (Death, Hospitalization, Other)
  Sender: FDA-Public Use
  Company Number: PHHY2012CA013734

PATIENT
  Sex: Female

DRUGS (3)
  1. SANDOSTATIN [Suspect]
     Indication: OVARIAN NEOPLASM
     Dosage: UNK UKN, TID
     Route: 058
  2. SANDOSTATIN LAR [Suspect]
     Dosage: 20 MG, EVERY 4 WEEKS
     Route: 030
     Dates: start: 20120220
  3. SANDOSTATIN LAR [Suspect]
     Indication: OVARIAN NEOPLASM
     Dosage: 20 MG, EVERY 4 WEEKS
     Route: 030
     Dates: start: 20120123

REACTIONS (4)
  - INTESTINAL OBSTRUCTION [None]
  - RESPIRATORY ARREST [None]
  - INJECTION SITE EXTRAVASATION [None]
  - METASTASES TO PERITONEUM [None]
